FAERS Safety Report 8363442-8 (Version None)
Quarter: 2012Q2

REPORT INFORMATION
  Report Type: 
  Country: None (occurrence: None)
  Receive Date: 20120514
  Receipt Date: 20120503
  Transmission Date: 20120825
  Serious: Yes (Other)
  Sender: FDA-Public Use
  Company Number: DSA_56418_2012

PATIENT
  Age: 90 Year
  Sex: Female

DRUGS (2)
  1. WARFARIN SODIUM [Suspect]
     Indication: ATRIAL FIBRILLATION
     Dosage: (DF ORAL)
     Route: 048
  2. FLAGYL [Suspect]
     Indication: DIARRHOEA
     Dosage: (1.2 G, DAILY ORAL)
     Route: 048
     Dates: start: 20120319, end: 20120329

REACTIONS (1)
  - INTERNATIONAL NORMALISED RATIO INCREASED [None]
